FAERS Safety Report 23434358 (Version 1)
Quarter: 2024Q1

REPORT INFORMATION
  Report Type: Spontaneous
  Country: US (occurrence: US)
  Receive Date: 20240123
  Receipt Date: 20240123
  Transmission Date: 20240410
  Serious: No
  Sender: FDA-Public Use
  Company Number: US-NOVOPROD-1113563

PATIENT
  Age: 65 Year
  Sex: Female
  Weight: 95.254 kg

DRUGS (1)
  1. WEGOVY [Suspect]
     Active Substance: SEMAGLUTIDE
     Indication: Weight control
     Dosage: WEEKLY FOLLOWING PROTOCOL STARTING AT .25
     Route: 058
     Dates: start: 20230418, end: 20230818

REACTIONS (7)
  - Pain [Recovered/Resolved]
  - Hepatic enzyme increased [Not Recovered/Not Resolved]
  - Blood chloride decreased [Not Recovered/Not Resolved]
  - Feeding disorder [Not Recovered/Not Resolved]
  - Weight decreased [Unknown]
  - Dizziness [Not Recovered/Not Resolved]
  - Nausea [Recovered/Resolved]

NARRATIVE: CASE EVENT DATE: 20230801
